FAERS Safety Report 14539099 (Version 1)
Quarter: 2018Q1

REPORT INFORMATION
  Report Type: Spontaneous
  Country: JP (occurrence: JP)
  Receive Date: 20180216
  Receipt Date: 20180216
  Transmission Date: 20180509
  Serious: Yes (Hospitalization)
  Sender: FDA-Public Use
  Company Number: JP-ELI_LILLY_AND_COMPANY-JP201802003963

PATIENT
  Age: 85 Year
  Sex: Male

DRUGS (1)
  1. INSULIN GLARGINE [Suspect]
     Active Substance: INSULIN GLARGINE
     Indication: TYPE 2 DIABETES MELLITUS
     Dosage: UNK
     Route: 058

REACTIONS (5)
  - Injection site atrophy [Not Recovered/Not Resolved]
  - Hyperglycaemia [Recovering/Resolving]
  - Anti-insulin antibody increased [Recovering/Resolving]
  - Hypoglycaemia [Recovering/Resolving]
  - Drug hypersensitivity [Recovering/Resolving]
